FAERS Safety Report 4343533-9 (Version None)
Quarter: 2004Q2

REPORT INFORMATION
  Report Type: 
  Country: None (occurrence: None)
  Receive Date: 20040419
  Receipt Date: 20040329
  Transmission Date: 20050107
  Serious: Yes (Life-Threatening, Hospitalization, Other)
  Sender: FDA-Public Use
  Company Number: B0328449A

PATIENT
  Age: 41 Year
  Sex: Female

DRUGS (5)
  1. IMITREX [Suspect]
  2. TOPIRMATE [Concomitant]
  3. PROPRANOLOL HYDROCHLORIDE [Concomitant]
  4. GABAPENTIN [Concomitant]
  5. SERTRALINE [Concomitant]

REACTIONS (9)
  - ARRHYTHMIA [None]
  - CARDIAC DISORDER [None]
  - CARDIAC ENZYMES INCREASED [None]
  - EJECTION FRACTION DECREASED [None]
  - LOSS OF CONSCIOUSNESS [None]
  - PULSE ABSENT [None]
  - SUPRAVENTRICULAR EXTRASYSTOLES [None]
  - VENTRICULAR EXTRASYSTOLES [None]
  - VENTRICULAR FIBRILLATION [None]
